FAERS Safety Report 21958571 (Version 1)
Quarter: 2023Q1

REPORT INFORMATION
  Report Type: Spontaneous
  Country: BR (occurrence: BR)
  Receive Date: 20230206
  Receipt Date: 20230206
  Transmission Date: 20230417
  Serious: Yes (Hospitalization)
  Sender: FDA-Public Use
  Company Number: BR-ELI_LILLY_AND_COMPANY-BR202301010536

PATIENT
  Sex: Female

DRUGS (4)
  1. BASAGLAR [Suspect]
     Active Substance: INSULIN GLARGINE
     Indication: Product used for unknown indication
     Dosage: 17 U, EACH EVENING
     Route: 065
     Dates: start: 202205
  2. BASAGLAR [Suspect]
     Active Substance: INSULIN GLARGINE
     Indication: Product used for unknown indication
     Dosage: 17 U, EACH EVENING
     Route: 065
     Dates: start: 202205
  3. BASAGLAR [Suspect]
     Active Substance: INSULIN GLARGINE
     Dosage: 17 U, EACH EVENING
     Route: 065
     Dates: start: 202205
  4. BASAGLAR [Suspect]
     Active Substance: INSULIN GLARGINE
     Dosage: 17 U, EACH EVENING
     Route: 065
     Dates: start: 202205

REACTIONS (9)
  - Diabetes mellitus inadequate control [Unknown]
  - Weight decreased [Unknown]
  - Asthenia [Unknown]
  - Malaise [Unknown]
  - Muscle atrophy [Unknown]
  - Blood potassium decreased [Unknown]
  - Blood calcium decreased [Unknown]
  - Pain [Unknown]
  - Gait disturbance [Recovering/Resolving]
